FAERS Safety Report 20586858 (Version 1)
Quarter: 2022Q1

REPORT INFORMATION
  Report Type: Spontaneous
  Country: FR (occurrence: FR)
  Receive Date: 20220314
  Receipt Date: 20220314
  Transmission Date: 20220423
  Serious: Yes (Hospitalization, Other)
  Sender: FDA-Public Use
  Company Number: FR-CHIESI-2022CHF00717

PATIENT
  Age: 34 Year
  Sex: Female

DRUGS (4)
  1. PAROXETINE [Suspect]
     Active Substance: PAROXETINE
     Indication: Product used for unknown indication
     Dosage: UNK
     Route: 065
  2. ESKETAMINE [Suspect]
     Active Substance: ESKETAMINE
     Indication: Depression
     Dosage: 84 MILLIGRAM (EVERY 15 DAYS)
     Route: 065
  3. ESKETAMINE [Suspect]
     Active Substance: ESKETAMINE
     Dosage: 84 MILLIGRAM, EVERY WEEK
     Route: 065
  4. ESKETAMINE [Suspect]
     Active Substance: ESKETAMINE
     Dosage: 84 MILLIGRAM (EVERY 15 DAYS)
     Route: 065

REACTIONS (6)
  - Suicide attempt [Recovered/Resolved]
  - Suicidal ideation [Unknown]
  - Appetite disorder [Unknown]
  - Feeling guilty [Unknown]
  - Depressed mood [Unknown]
  - Sleep disorder [Unknown]
